FAERS Safety Report 13155789 (Version 1)
Quarter: 2017Q1

REPORT INFORMATION
  Report Type: Spontaneous
  Country: US (occurrence: US)
  Receive Date: 20170126
  Receipt Date: 20170126
  Transmission Date: 20170428
  Serious: No
  Sender: FDA-Public Use
  Company Number: US-ROCHE-1013799

PATIENT
  Sex: Male

DRUGS (2)
  1. VALIUM [Suspect]
     Active Substance: DIAZEPAM
     Dosage: STARTED 2 YEARS BACK AGAIN.
     Route: 048
  2. VALIUM [Suspect]
     Active Substance: DIAZEPAM
     Indication: ANXIETY
     Dosage: TAKING 20 YEARS BACK
     Route: 048

REACTIONS (4)
  - Withdrawal syndrome [Unknown]
  - Drug ineffective [Unknown]
  - Drug detoxification [Unknown]
  - Palpitations [Unknown]
